FAERS Safety Report 5631819-7 (Version None)
Quarter: 2008Q1

REPORT INFORMATION
  Report Type: 
  Country: None (occurrence: None)
  Receive Date: 20080220
  Receipt Date: 20080212
  Transmission Date: 20080703
  Serious: Yes (Hospitalization, Other)
  Sender: FDA-Public Use
  Company Number: PHBS2006AT01957

PATIENT
  Age: 69 Year
  Sex: Male

DRUGS (4)
  1. CHEMOTHERAPEUTICS,OTHER [Concomitant]
     Route: 065
     Dates: start: 20040801
  2. TAXOTERE [Concomitant]
     Dosage: 6 CYCLES
     Route: 065
  3. ZOLADEX [Concomitant]
     Dosage: EVERY 3 MONTHS
     Route: 065
     Dates: start: 19990101
  4. ZOMETA [Suspect]
     Indication: METASTASES TO BONE
     Dosage: 4 MG, QMO
     Route: 042
     Dates: start: 20030101

REACTIONS (9)
  - BONE TRIMMING [None]
  - GINGIVITIS [None]
  - OSTEOMYELITIS [None]
  - OSTEONECROSIS [None]
  - PRIMARY SEQUESTRUM [None]
  - SEQUESTRECTOMY [None]
  - TOOTH EXTRACTION [None]
  - TOOTHACHE [None]
  - WOUND DEHISCENCE [None]
